FAERS Safety Report 5232809-9 (Version None)
Quarter: 2007Q1

REPORT INFORMATION
  Report Type: 
  Country: None (occurrence: None)
  Receive Date: 20070206
  Receipt Date: 20070206
  Transmission Date: 20070707
  Serious: No
  Sender: FDA-Public Use
  Company Number: None

PATIENT
  Sex: Male
  Weight: 75 kg

DRUGS (1)
  1. BENZOCAINE SPRAY -HURRICAINE- 20% BEUTLICH [Suspect]
     Indication: INTUBATION
     Dates: start: 20070131, end: 20070131

REACTIONS (3)
  - BLOOD METHAEMOGLOBIN PRESENT [None]
  - CYANOSIS [None]
  - OXYGEN SATURATION DECREASED [None]
